FAERS Safety Report 21887645 (Version 1)
Quarter: 2023Q1

REPORT INFORMATION
  Report Type: Spontaneous
  Country: JP (occurrence: JP)
  Receive Date: 20230120
  Receipt Date: 20230120
  Transmission Date: 20230418
  Serious: Yes (Other)
  Sender: FDA-Public Use
  Company Number: JP-STRIDES ARCOLAB LIMITED-2023SP000953

PATIENT
  Age: 48 Year
  Sex: Male

DRUGS (3)
  1. DOXORUBICIN [Suspect]
     Active Substance: DOXORUBICIN
     Indication: Primary amyloidosis
     Dosage: 10 MILLIGRAM/SQ. METER (TWO COURSES; DURING EACH COURSE ON DAYS 1 TO 4)
     Route: 065
  2. DEXAMETHASONE [Suspect]
     Active Substance: DEXAMETHASONE
     Indication: Primary amyloidosis
     Dosage: 40 MILLIGRAM (TWO COURSES; DURING EACH COURSE ON DAYS 1 TO 4, 9 TO 12 AND 17 TO 20 )
     Route: 065
  3. VINCRISTINE [Suspect]
     Active Substance: VINCRISTINE
     Indication: Primary amyloidosis
     Dosage: 0.4 MILLIGRAM,(TWO COURSES; DURING EACH COURSE ON DAYS 1 TO 4 )
     Route: 065

REACTIONS (2)
  - Acute kidney injury [Unknown]
  - Off label use [Unknown]
